FAERS Safety Report 20473136 (Version 2)
Quarter: 2022Q1

REPORT INFORMATION
  Report Type: Spontaneous
  Country: RU (occurrence: RU)
  Receive Date: 20220215
  Receipt Date: 20220304
  Transmission Date: 20220423
  Serious: Yes (Death, Hospitalization)
  Sender: FDA-Public Use
  Company Number: RU-ABBVIE-22K-251-4278118-00

PATIENT
  Age: 41 Year
  Sex: Male

DRUGS (1)
  1. GLECAPREVIR\PIBRENTASVIR [Suspect]
     Active Substance: GLECAPREVIR\PIBRENTASVIR
     Indication: Chronic hepatitis C
     Route: 048
     Dates: start: 2020, end: 2020

REACTIONS (1)
  - Oesophageal varices haemorrhage [Fatal]

NARRATIVE: CASE EVENT DATE: 20200101
